FAERS Safety Report 15678247 (Version 1)
Quarter: 2018Q4

REPORT INFORMATION
  Report Type: Spontaneous
  Country: IT (occurrence: IT)
  Receive Date: 20181201
  Receipt Date: 20181201
  Transmission Date: 20190205
  Serious: Yes (Other)
  Sender: FDA-Public Use
  Company Number: IT-AUROBINDO-AUR-APL-2018-057369

PATIENT
  Age: 64 Year
  Sex: Female

DRUGS (7)
  1. IDARUBICIN [Suspect]
     Active Substance: IDARUBICIN
     Indication: ACUTE MYELOID LEUKAEMIA (IN REMISSION)
     Dosage: UNK, 2 CYCLES
     Route: 065
     Dates: start: 20121016, end: 20130120
  2. AZACITIDINE. [Suspect]
     Active Substance: AZACITIDINE
     Indication: HEPATITIS B
     Dosage: UNK, 30 CYCLES
     Route: 065
  3. CYTARABINE. [Suspect]
     Active Substance: CYTARABINE
     Indication: ACUTE MYELOID LEUKAEMIA (IN REMISSION)
     Dosage: UNK, 2 CYCLES
     Route: 065
     Dates: start: 20121016, end: 20130120
  4. CICLOSPORIN [Suspect]
     Active Substance: CYCLOSPORINE
     Indication: HEPATITIS B
     Dosage: UNK
     Route: 065
     Dates: end: 201507
  5. FLUDARABINE [Suspect]
     Active Substance: FLUDARABINE PHOSPHATE
     Indication: ACUTE MYELOID LEUKAEMIA (IN REMISSION)
     Dosage: UNK, 2 CYCLES
     Route: 065
     Dates: start: 20121016, end: 20130120
  6. CYTARABINE. [Suspect]
     Active Substance: CYTARABINE
     Dosage: UNK, SINGLE CYCLE
     Route: 065
     Dates: start: 20130220
  7. LAMIVUDINE. [Suspect]
     Active Substance: LAMIVUDINE
     Indication: HEPATITIS B
     Dosage: UNK
     Route: 065

REACTIONS (3)
  - Drug resistance [Unknown]
  - Hepatitis B reactivation [Recovered/Resolved]
  - Graft versus host disease [Recovered/Resolved]

NARRATIVE: CASE EVENT DATE: 201311
